FAERS Safety Report 4302385-3 (Version None)
Quarter: 2004Q1

REPORT INFORMATION
  Report Type: 
  Country: None (occurrence: None)
  Receive Date: 20040126
  Receipt Date: 20031014
  Transmission Date: 20041129
  Serious: No
  Sender: FDA-Public Use
  Company Number: USA031049794

PATIENT
  Age: 30 Year
  Sex: Female
  Weight: 91 kg

DRUGS (2)
  1. STRATTERA [Suspect]
     Indication: ATTENTION DEFICIT/HYPERACTIVITY DISORDER
     Dosage: 25 MG/DAY
     Dates: start: 20031013
  2. WELLBUTRIN SR [Concomitant]

REACTIONS (3)
  - ANXIETY [None]
  - NAUSEA [None]
  - TREMOR [None]
